FAERS Safety Report 4289567-4 (Version None)
Quarter: 2004Q1

REPORT INFORMATION
  Report Type: 
  Country: None (occurrence: None)
  Receive Date: 20040128
  Receipt Date: 20030520
  Transmission Date: 20041129
  Serious: Yes (Hospitalization)
  Sender: FDA-Public Use
  Company Number: 03P-163-0218833-00

PATIENT
  Age: 5 Year
  Sex: Female

DRUGS (4)
  1. BIAXIN [Suspect]
     Indication: SINUSITIS
     Dosage: 250 MG, 2 IN 1 D, PER ORAL
     Route: 048
     Dates: start: 20030503, end: 20030508
  2. CLAVULIN [Suspect]
     Dosage: INTRAVENOUS
     Route: 042
     Dates: start: 20030508
  3. CEPHALOSPORIN [Suspect]
     Dosage: INTRAVENOUS
     Route: 042
     Dates: start: 20030501
  4. CETIRIZINE HCL [Concomitant]

REACTIONS (3)
  - DRUG HYPERSENSITIVITY [None]
  - DRUG INEFFECTIVE [None]
  - URTICARIA [None]
